FAERS Safety Report 18932083 (Version 2)
Quarter: 2021Q1

REPORT INFORMATION
  Report Type: Spontaneous
  Country: FR (occurrence: FR)
  Receive Date: 20210224
  Receipt Date: 20210310
  Transmission Date: 20210420
  Serious: Yes (Other)
  Sender: FDA-Public Use
  Company Number: FR-BIOVITRUM-2021FR1904

PATIENT
  Sex: Male

DRUGS (3)
  1. KINERET [Suspect]
     Active Substance: ANAKINRA
     Indication: STILL^S DISEASE
     Route: 058
  2. KINERET [Suspect]
     Active Substance: ANAKINRA
     Route: 058
  3. METOJECT [Concomitant]
     Active Substance: METHOTREXATE SODIUM
     Indication: STILL^S DISEASE

REACTIONS (6)
  - Drug ineffective [Unknown]
  - Injection site reaction [Unknown]
  - Condition aggravated [Unknown]
  - Injection site inflammation [Unknown]
  - Still^s disease [Unknown]
  - Injection site induration [Unknown]
